FAERS Safety Report 10078587 (Version 1)
Quarter: 2014Q2

REPORT INFORMATION
  Report Type: Spontaneous
  Country: US (occurrence: US)
  Receive Date: 20140415
  Receipt Date: 20140415
  Transmission Date: 20141212
  Serious: Yes (Other)
  Sender: FDA-Public Use
  Company Number: US-ELI_LILLY_AND_COMPANY-US201404001717

PATIENT
  Sex: Male

DRUGS (4)
  1. HUMALOG 50% LISPRO, 50% NPL [Suspect]
     Indication: TYPE 2 DIABETES MELLITUS
     Dosage: UNK
     Route: 065
  2. LEVEMIR [Concomitant]
  3. NOVOLOG [Concomitant]
  4. JANUVIA [Concomitant]

REACTIONS (4)
  - Osteomyelitis [Not Recovered/Not Resolved]
  - Blood glucose increased [Unknown]
  - Somnolence [Unknown]
  - Peripheral swelling [Unknown]
